FAERS Safety Report 15216632 (Version 3)
Quarter: 2020Q4

REPORT INFORMATION
  Report Type: Spontaneous
  Country: US (occurrence: US)
  Receive Date: 20180730
  Receipt Date: 20201109
  Transmission Date: 20210113
  Serious: No
  Sender: FDA-Public Use
  Company Number: US-SA-2018SA202617

PATIENT

DRUGS (3)
  1. DUPIXENT [Suspect]
     Active Substance: DUPILUMAB
     Indication: DERMATITIS
     Dosage: 300 MG, QOW
     Route: 058
     Dates: start: 2018, end: 202001
  2. DUPIXENT [Suspect]
     Active Substance: DUPILUMAB
     Dosage: 300 MG, QOW
     Route: 058
     Dates: start: 20200327
  3. DUPIXENT [Suspect]
     Active Substance: DUPILUMAB
     Indication: ECZEMA
     Dosage: 2 DF, 1X
     Route: 058
     Dates: start: 201808, end: 201808

REACTIONS (16)
  - Vision blurred [Unknown]
  - Oral herpes [Unknown]
  - Therapeutic response decreased [Unknown]
  - Burning sensation [Unknown]
  - Aphthous ulcer [Unknown]
  - Eyelid ptosis [Unknown]
  - Eczema [Unknown]
  - Skin exfoliation [Unknown]
  - Eczema [Unknown]
  - Inflammation [Unknown]
  - Swelling of eyelid [Unknown]
  - Paraesthesia [Unknown]
  - Stress [Unknown]
  - Product use in unapproved indication [Unknown]
  - Pain [Unknown]
  - Pruritus [Unknown]

NARRATIVE: CASE EVENT DATE: 2020
